FAERS Safety Report 12860371 (Version 2)
Quarter: 2016Q4

REPORT INFORMATION
  Report Type: Spontaneous
  Country: ES (occurrence: ES)
  Receive Date: 20161019
  Receipt Date: 20161201
  Transmission Date: 20170207
  Serious: Yes (Death, Hospitalization)
  Sender: FDA-Public Use
  Company Number: ES-PFIZER INC-2016480474

PATIENT
  Age: 62 Year
  Sex: Male

DRUGS (1)
  1. TRANGOREX [Suspect]
     Active Substance: AMIODARONE HYDROCHLORIDE
     Indication: ATRIAL FIBRILLATION
     Dosage: 200 MG, 1X/DAY
     Route: 048
     Dates: start: 201509, end: 20160823

REACTIONS (1)
  - Thyroiditis [Fatal]

NARRATIVE: CASE EVENT DATE: 20161007
